FAERS Safety Report 5062749-X (Version None)
Quarter: 2006Q3

REPORT INFORMATION
  Report Type: 
  Country: None (occurrence: None)
  Receive Date: 20060724
  Receipt Date: 20060717
  Transmission Date: 20061208
  Serious: Yes (Life-Threatening)
  Sender: FDA-Public Use
  Company Number: GXKR2006DE04050

PATIENT
  Age: 40 Year
  Sex: Male

DRUGS (3)
  1. RISPERIDONE [Suspect]
     Indication: SCHIZOPHRENIA
     Dosage: 8 MG, QD; 7 MG, QD;  3 MG, QD
  2. MIRTAZAPINE [Suspect]
     Indication: MAJOR DEPRESSION
     Dosage: 45 MG, QD;  60 MG, QD
  3. BIPERIDEN (BIPERIDEN) [Concomitant]

REACTIONS (3)
  - DRUG INEFFECTIVE [None]
  - PULMONARY EMBOLISM [None]
  - RHABDOMYOLYSIS [None]
